FAERS Safety Report 4890450-1 (Version None)
Quarter: 2005Q4

REPORT INFORMATION
  Report Type: 
  Country: None (occurrence: None)
  Receive Date: 20051216
  Receipt Date: 20051005
  Transmission Date: 20060501
  Serious: No
  Sender: FDA-Public Use
  Company Number: BDI-007602

PATIENT
  Age: 79 Year
  Sex: Female

DRUGS (2)
  1. MULTIHANCE [Suspect]
     Indication: NUCLEAR MAGNETIC RESONANCE IMAGING
     Dosage: 10 ML ONCE IV
     Route: 042
     Dates: start: 20051004, end: 20051004
  2. MULTIHANCE [Suspect]
     Indication: PAIN
     Dosage: 10 ML ONCE IV
     Route: 042
     Dates: start: 20051004, end: 20051004

REACTIONS (4)
  - CHEST PAIN [None]
  - NAUSEA [None]
  - RETCHING [None]
  - VOMITING [None]
